FAERS Safety Report 16849008 (Version 2)
Quarter: 2019Q3

REPORT INFORMATION
  Report Type: Report from Study
  Country: US (occurrence: US)
  Receive Date: 20190925
  Receipt Date: 20190927
  Transmission Date: 20191005
  Serious: Yes (Hospitalization, Other)
  Sender: FDA-Public Use
  Company Number: US-ROCHE-2412505

PATIENT
  Age: 64 Year
  Sex: Female
  Weight: 61.29 kg

DRUGS (6)
  1. MYRBETRIQ [Concomitant]
     Active Substance: MIRABEGRON
     Indication: HYPERTONIC BLADDER
     Dosage: ONGOING : YES
     Route: 048
     Dates: start: 20180101
  2. LEVOTHYROXINE. [Concomitant]
     Active Substance: LEVOTHYROXINE
     Indication: HYPOTHYROIDISM
     Dosage: .088 MCGS DAILY ;ONGOING: YES
     Route: 048
     Dates: start: 19980101
  3. OCREVUS [Suspect]
     Active Substance: OCRELIZUMAB
     Indication: RELAPSING MULTIPLE SCLEROSIS
     Dosage: EVERY 6 MONTHS ; ONGOING : YES
     Route: 042
     Dates: start: 201803
  4. OCREVUS [Suspect]
     Active Substance: OCRELIZUMAB
     Dosage: EVERY 6 MONTHS ; ONGOING : YES
     Route: 042
  5. BACLOFEN. [Concomitant]
     Active Substance: BACLOFEN
     Indication: MUSCLE SPASMS
     Dosage: 1 TABLET 4 TIMES A DAY ;ONGOING: YES
     Route: 048
  6. GABAPENTIN. [Concomitant]
     Active Substance: GABAPENTIN
     Indication: NEURALGIA
     Dosage: 6 TABLETS A DAY ;ONGOING: YES
     Route: 048

REACTIONS (5)
  - Loss of consciousness [Unknown]
  - Urinary tract infection [Unknown]
  - Memory impairment [Unknown]
  - Cognitive disorder [Not Recovered/Not Resolved]
  - Seizure [Recovered/Resolved]

NARRATIVE: CASE EVENT DATE: 20190119
